FAERS Safety Report 23085142 (Version 1)
Quarter: 2023Q4

REPORT INFORMATION
  Report Type: Spontaneous
  Country: US (occurrence: US)
  Receive Date: 20231019
  Receipt Date: 20231019
  Transmission Date: 20240110
  Serious: No
  Sender: FDA-Public Use
  Company Number: US-BRISTOL-MYERS SQUIBB COMPANY-2023-149499

PATIENT

DRUGS (2)
  1. ABRAXANE [Suspect]
     Active Substance: PACLITAXEL
     Indication: Pancreatic carcinoma
     Dosage: DOSE : 145 MG; 150 MG;     FREQ : Q2 WEEKS; Q2 WEEKS
     Dates: start: 20220828
  2. ABRAXANE [Suspect]
     Active Substance: PACLITAXEL
     Dosage: DOSE : 145 MG; 150 MG;     FREQ : Q2 WEEKS; Q2 WEEKS
     Dates: start: 20220828

REACTIONS (1)
  - Off label use [Unknown]
